FAERS Safety Report 18314247 (Version 2)
Quarter: 2021Q2

REPORT INFORMATION
  Report Type: Report from Study
  Country: CO (occurrence: CO)
  Receive Date: 20200925
  Receipt Date: 20210531
  Transmission Date: 20210717
  Serious: Yes (Life-Threatening, Hospitalization)
  Sender: FDA-Public Use
  Company Number: NVSC2019CO072650

PATIENT
  Age: 68 Year
  Sex: Female
  Weight: 55 kg

DRUGS (4)
  1. LOSARTAN. [Suspect]
     Active Substance: LOSARTAN
     Indication: HYPERTENSION
     Dosage: 50 MG (DAILY)
     Route: 048
     Dates: start: 2019
  2. JAKAVI [Suspect]
     Active Substance: RUXOLITINIB
     Indication: POLYCYTHAEMIA VERA
     Dosage: 20 MG, Q12H
     Route: 048
     Dates: start: 20180517
  3. TRAMAL [Suspect]
     Active Substance: TRAMADOL
     Indication: PRODUCT USED FOR UNKNOWN INDICATION
     Route: 065
  4. ACETYLSALICYLIC ACID [Concomitant]
     Active Substance: ASPIRIN
     Indication: THROMBOSIS
     Dosage: DAILY
     Route: 048

REACTIONS (19)
  - Vomiting [Unknown]
  - Platelet count decreased [Unknown]
  - Spleen disorder [Unknown]
  - Splenic infarction [Unknown]
  - Decreased appetite [Unknown]
  - Pain [Recovering/Resolving]
  - Insomnia [Unknown]
  - Splenitis [Recovering/Resolving]
  - Gait disturbance [Unknown]
  - Abdominal pain upper [Recovered/Resolved]
  - Hypotension [Unknown]
  - Abdominal pain upper [Recovering/Resolving]
  - Nausea [Unknown]
  - Platelet count increased [Unknown]
  - Haemoglobin decreased [Unknown]
  - Anaemia [Unknown]
  - General physical health deterioration [Unknown]
  - Dizziness [Unknown]
  - Blood pressure abnormal [Unknown]

NARRATIVE: CASE EVENT DATE: 20200810
